FAERS Safety Report 16479399 (Version 1)
Quarter: 2019Q2

REPORT INFORMATION
  Report Type: Spontaneous
  Country: US (occurrence: US)
  Receive Date: 20190626
  Receipt Date: 20190626
  Transmission Date: 20190711
  Serious: No
  Sender: FDA-Public Use
  Company Number: US-HIKMA PHARMACEUTICALS USA INC.-US-H14001-18-07382

PATIENT
  Sex: Male

DRUGS (1)
  1. ZALEPLON. [Suspect]
     Active Substance: ZALEPLON
     Indication: SLEEP DISORDER
     Route: 048
     Dates: start: 201808, end: 201808

REACTIONS (3)
  - Somnolence [Not Recovered/Not Resolved]
  - Nausea [Not Recovered/Not Resolved]
  - Dizziness [Not Recovered/Not Resolved]
